FAERS Safety Report 10307385 (Version 3)
Quarter: 2014Q3

REPORT INFORMATION
  Report Type: Report from Study
  Country: AU (occurrence: AU)
  Receive Date: 20140716
  Receipt Date: 20140716
  Transmission Date: 20150326
  Serious: Yes (Hospitalization, Other)
  Sender: FDA-Public Use
  Company Number: AU-ROCHE-1297608

PATIENT
  Age: 62 Year
  Sex: Female

DRUGS (10)
  1. FERROUS SULFATE [Concomitant]
     Active Substance: FERROUS SULFATE\FERROUS SULFATE, DRIED
     Dosage: STARTED 2 MONTHS AGO; ONGOING
     Route: 048
  2. METHOTREXATE [Concomitant]
     Active Substance: METHOTREXATE
     Indication: RHEUMATOID ARTHRITIS
     Dosage: STARTED 10 YEARS + AGO; ONGOING
     Route: 048
  3. PLAQUENIL [Concomitant]
     Active Substance: HYDROXYCHLOROQUINE SULFATE
     Indication: RHEUMATOID ARTHRITIS
     Dosage: STARTED 14 YEARS AGO; ONGOING
     Route: 048
  4. SERETIDE [Concomitant]
     Active Substance: FLUTICASONE FUROATE\SALMETEROL XINAFOATE
     Indication: ASTHMA
     Dosage: PUFFER; STARTED 40 YEARS + AGO; ONGOING
     Route: 065
  5. ACTEMRA [Suspect]
     Active Substance: TOCILIZUMAB
     Indication: RHEUMATOID ARTHRITIS
     Route: 042
     Dates: start: 20130221
  6. PARIET [Concomitant]
     Active Substance: RABEPRAZOLE SODIUM
     Indication: GASTROOESOPHAGEAL REFLUX DISEASE
     Dosage: STARTED 2 YEARS AGO; ONGOING
     Route: 048
  7. ACTEMRA [Suspect]
     Active Substance: TOCILIZUMAB
     Route: 042
  8. FOLIC ACID. [Concomitant]
     Active Substance: FOLIC ACID
     Dosage: STARTED 10 YEARS + AGO; ONGOING
     Route: 048
  9. NAPROSYN [Concomitant]
     Active Substance: NAPROXEN
     Dosage: STARTED 10 YEARS AGO; ONGOING
     Route: 065
  10. VENTOLIN [Concomitant]
     Active Substance: ALBUTEROL SULFATE
     Indication: ASTHMA
     Dosage: PUFFER; STARTED 40 YEARS + AGO; ONGOING
     Route: 065

REACTIONS (5)
  - Anaemia [Recovering/Resolving]
  - Gastrointestinal haemorrhage [Recovered/Resolved]
  - Knee arthroplasty [Recovered/Resolved]
  - Vomiting [Recovered/Resolved]
  - Knee arthroplasty [Recovering/Resolving]

NARRATIVE: CASE EVENT DATE: 20131016
